FAERS Safety Report 6706921-9 (Version None)
Quarter: 2010Q2

REPORT INFORMATION
  Report Type: 
  Country: None (occurrence: None)
  Receive Date: 20100430
  Receipt Date: 20100430
  Transmission Date: 20101027
  Serious: Yes (Other)
  Sender: FDA-Public Use
  Company Number: None

PATIENT
  Age: 70 Month
  Sex: Female
  Weight: 52.1637 kg

DRUGS (1)
  1. ACTONEL [Suspect]
     Indication: OSTEOPOROSIS
     Dosage: 150 MG. ONCE A MONTH. PO
     Route: 048
     Dates: start: 20100415, end: 20100415

REACTIONS (3)
  - CHONDROCALCINOSIS PYROPHOSPHATE [None]
  - JOINT EFFUSION [None]
  - PYREXIA [None]
